FAERS Safety Report 8377960-X (Version None)
Quarter: 2012Q2

REPORT INFORMATION
  Report Type: 
  Country: None (occurrence: None)
  Receive Date: 20120521
  Receipt Date: 20120507
  Transmission Date: 20120825
  Serious: Yes (Other)
  Sender: FDA-Public Use
  Company Number: 2012P1023315

PATIENT
  Age: 73 Year
  Sex: Female

DRUGS (2)
  1. LEVOTHYROXINE SODIUM [Concomitant]
  2. AMIODARONE HCL [Suspect]
     Indication: SUPRAVENTRICULAR TACHYARRHYTHMIA

REACTIONS (2)
  - NEUROMYOPATHY [None]
  - DYSPHAGIA [None]
